FAERS Safety Report 23388743 (Version 1)
Quarter: 2024Q1

REPORT INFORMATION
  Report Type: Spontaneous
  Country: US (occurrence: None)
  Receive Date: 20240110
  Receipt Date: 20240110
  Transmission Date: 20240410
  Serious: Yes (unspecified)
  Sender: FDA-Public Use
  Company Number: None

PATIENT
  Age: 72 Year
  Sex: Female

DRUGS (12)
  1. SPRYCEL [Suspect]
     Active Substance: DASATINIB
     Indication: Chronic myeloid leukaemia
     Dosage: FREQUENCY : DAILY;?
     Route: 048
     Dates: start: 20231212
  2. MONTELUKAST [Concomitant]
     Active Substance: MONTELUKAST SODIUM
  3. ALBUTEROL [Concomitant]
     Active Substance: ALBUTEROL
  4. ALBUTEROL HFA INH [Concomitant]
  5. CITALOPRAM [Concomitant]
     Active Substance: CITALOPRAM HYDROBROMIDE
  6. FARXIGA [Concomitant]
     Active Substance: DAPAGLIFLOZIN PROPANEDIOL
  7. FENOFIBRATE [Concomitant]
     Active Substance: FENOFIBRATE
  8. FERROUS SULFATE [Concomitant]
     Active Substance: FERROUS SULFATE
  9. FUROSEMIDE [Concomitant]
     Active Substance: FUROSEMIDE
  10. LANTUS SOLOSTAR [Concomitant]
     Active Substance: INSULIN GLARGINE
  11. LANTUS SOLOSTAR [Concomitant]
     Active Substance: INSULIN GLARGINE
  12. LINZESS [Concomitant]
     Active Substance: LINACLOTIDE

REACTIONS (1)
  - Pleural effusion [None]
